FAERS Safety Report 5788056-5 (Version None)
Quarter: 2008Q2

REPORT INFORMATION
  Report Type: 
  Country: None (occurrence: None)
  Receive Date: 20080625
  Receipt Date: 20080619
  Transmission Date: 20081010
  Serious: Yes (Hospitalization)
  Sender: FDA-Public Use
  Company Number: US-ELI_LILLY_AND_COMPANY-US200806004623

PATIENT
  Sex: Female

DRUGS (3)
  1. EVISTA [Suspect]
     Indication: OSTEOPENIA
     Dosage: 60 MG, DAILY (1/D)
  2. AVAPRO [Concomitant]
     Indication: HYPERTENSION
  3. LASIX [Concomitant]
     Indication: HYPERTENSION

REACTIONS (5)
  - ANKLE FRACTURE [None]
  - BLOOD URINE PRESENT [None]
  - FLANK PAIN [None]
  - NEPHROLITHIASIS [None]
  - OSTEOPOROSIS [None]
